FAERS Safety Report 5517591-X (Version None)
Quarter: 2007Q4

REPORT INFORMATION
  Report Type: 
  Country: None (occurrence: None)
  Receive Date: 20071114
  Receipt Date: 20071102
  Transmission Date: 20080405
  Serious: Yes (Other)
  Sender: FDA-Public Use
  Company Number: GB-PFIZER INC-2007087372

PATIENT
  Sex: Female
  Weight: 73 kg

DRUGS (2)
  1. CHAMPIX [Suspect]
     Route: 048
  2. ANTIHYPERTENSIVES [Concomitant]

REACTIONS (2)
  - BLOOD PRESSURE INCREASED [None]
  - VAGINAL HAEMORRHAGE [None]
